FAERS Safety Report 6301832-5 (Version None)
Quarter: 2009Q3

REPORT INFORMATION
  Report Type: 
  Country: None (occurrence: None)
  Receive Date: 20090807
  Receipt Date: 20090730
  Transmission Date: 20100115
  Serious: Yes (Death)
  Sender: FDA-Public Use
  Company Number: ES-ROCHE-647155

PATIENT
  Age: 70 Year
  Sex: Male

DRUGS (3)
  1. CAPECITABINE [Suspect]
     Indication: RECTAL CANCER
     Route: 048
     Dates: start: 20090429, end: 20090516
  2. OXALIPLATIN [Suspect]
     Indication: RECTAL CANCER
     Dosage: DOSE: 249 MG TOTAL
     Route: 042
     Dates: start: 20090428, end: 20090428
  3. KYTRIL [Concomitant]
     Route: 048
     Dates: start: 20090428, end: 20090503

REACTIONS (4)
  - DIARRHOEA [None]
  - HEPATIC FAILURE [None]
  - LACTIC ACIDOSIS [None]
  - RENAL FAILURE ACUTE [None]
